FAERS Safety Report 4901422-2 (Version None)
Quarter: 2006Q1

REPORT INFORMATION
  Report Type: 
  Country: None (occurrence: None)
  Receive Date: 20060206
  Receipt Date: 20060123
  Transmission Date: 20060701
  Serious: Yes (Other)
  Sender: FDA-Public Use
  Company Number: PHBS2006ES01240

PATIENT
  Age: 76 Year
  Sex: Female

DRUGS (3)
  1. AREDIA [Suspect]
     Indication: MULTIPLE MYELOMA
     Dosage: 15 MG, UNK
     Route: 065
     Dates: start: 19991128, end: 20010109
  2. ZOMETA [Suspect]
     Indication: MULTIPLE MYELOMA
     Dosage: 4 MG, UNK
     Route: 065
     Dates: start: 20040326, end: 20050318
  3. VELCADE [Concomitant]
     Dosage: 3.5 MG/DAY
     Dates: start: 20050328, end: 20050518

REACTIONS (2)
  - BONE DISORDER [None]
  - DRUG INTERACTION [None]
